FAERS Safety Report 15795147 (Version 1)
Quarter: 2019Q1

REPORT INFORMATION
  Report Type: Spontaneous
  Country: CN (occurrence: CN)
  Receive Date: 20190107
  Receipt Date: 20190107
  Transmission Date: 20190417
  Serious: Yes (Hospitalization)
  Sender: FDA-Public Use
  Company Number: CN-PFIZER INC-2019001223

PATIENT
  Age: 20 Year
  Sex: Male
  Weight: 50 kg

DRUGS (2)
  1. METHYLPREDNISOLONE. [Suspect]
     Active Substance: METHYLPREDNISOLONE
     Indication: HENOCH-SCHONLEIN PURPURA
     Dosage: 16 MG, 2X/DAY
     Route: 048
     Dates: start: 20180804, end: 20180919
  2. DEXAMETHASONE ACETATE [Suspect]
     Active Substance: DEXAMETHASONE ACETATE
     Indication: HENOCH-SCHONLEIN PURPURA
     Dosage: 3 MG, 2X/DAY
     Route: 048
     Dates: start: 20180920, end: 20181104

REACTIONS (1)
  - Confusional state [Recovering/Resolving]

NARRATIVE: CASE EVENT DATE: 20181102
